FAERS Safety Report 8565156-8 (Version None)
Quarter: 2012Q3

REPORT INFORMATION
  Report Type: 
  Country: None (occurrence: None)
  Receive Date: 20120803
  Receipt Date: 20120727
  Transmission Date: 20120928
  Serious: No
  Sender: FDA-Public Use
  Company Number: US-PFIZER INC-2012147783

PATIENT
  Sex: Male

DRUGS (1)
  1. PENICILLIN G BENZATHINE [Suspect]
     Dosage: UNK

REACTIONS (2)
  - DRUG HYPERSENSITIVITY [None]
  - NO ADVERSE EVENT [None]
